FAERS Safety Report 5496565-1 (Version None)
Quarter: 2007Q4

REPORT INFORMATION
  Report Type: 
  Country: None (occurrence: None)
  Receive Date: 20071025
  Receipt Date: 20070618
  Transmission Date: 20080405
  Serious: No
  Sender: FDA-Public Use
  Company Number: A0657188A

PATIENT
  Age: 59 Year
  Sex: Female

DRUGS (8)
  1. ADVAIR DISKUS 100/50 [Suspect]
     Indication: ASTHMA
     Dosage: 500MG TWICE PER DAY
     Route: 055
  2. COMBIVENT [Concomitant]
  3. SINGULAIR [Concomitant]
  4. AVAPRO [Concomitant]
  5. PREVACID [Concomitant]
  6. HYDROCHLOROTHIAZIDE [Concomitant]
  7. ZYRTEC [Concomitant]
  8. ALLEGRA [Concomitant]

REACTIONS (1)
  - ARTHRITIS [None]
